FAERS Safety Report 11704071 (Version 1)
Quarter: 2015Q4

REPORT INFORMATION
  Report Type: Spontaneous
  Country: US (occurrence: None)
  Receive Date: 20151105
  Receipt Date: 20151105
  Transmission Date: 20160304
  Serious: Yes (Disabling)
  Sender: FDA-Public Use
  Company Number: None

PATIENT
  Age: 47 Year
  Sex: Female
  Weight: 68.04 kg

DRUGS (13)
  1. CITALORAM (GENERIC CELEXA) [Concomitant]
  2. FLUTICASONE PROPIONATE (GENERIC FLONASE) [Concomitant]
  3. RELIEF [Concomitant]
     Active Substance: WITCH HAZEL
  4. VITAMIN D3 [Concomitant]
     Active Substance: CHOLECALCIFEROL
  5. OMEPRAZOLE. [Concomitant]
     Active Substance: OMEPRAZOLE
  6. PB8 PROBIOTICS [Concomitant]
  7. RESQ FISH OIL [Concomitant]
  8. MULTI VITAMIN/MINERAL [Concomitant]
     Active Substance: MINERALS\VITAMINS
  9. DULOXETINE VARIED BETWEEN 20MG AND 90MG [Suspect]
     Active Substance: DULOXETINE
     Indication: GENERALISED ANXIETY DISORDER
     Dosage: 1 PILL
     Route: 048
     Dates: start: 20140922, end: 20151017
  10. ZYRTEC [Concomitant]
     Active Substance: CETIRIZINE HYDROCHLORIDE
  11. SALINE NASAL MIST [Concomitant]
  12. LEVOTHYROXINE. [Concomitant]
     Active Substance: LEVOTHYROXINE
  13. MONTELUKAST (GENERIC SINGULAIR) [Concomitant]

REACTIONS (21)
  - Decreased appetite [None]
  - Dizziness [None]
  - Nervousness [None]
  - Mental impairment [None]
  - Somnolence [None]
  - Withdrawal syndrome [None]
  - Tinnitus [None]
  - Muscular weakness [None]
  - Muscle tightness [None]
  - Diarrhoea [None]
  - Depression [None]
  - Nightmare [None]
  - Burning sensation [None]
  - Feeling abnormal [None]
  - Paraesthesia [None]
  - Anxiety [None]
  - Visual acuity reduced [None]
  - Musculoskeletal stiffness [None]
  - Malaise [None]
  - Nausea [None]
  - Hypertension [None]

NARRATIVE: CASE EVENT DATE: 20150601
